FAERS Safety Report 5471637-6 (Version None)
Quarter: 2007Q3

REPORT INFORMATION
  Report Type: 
  Country: None (occurrence: None)
  Receive Date: 20070928
  Receipt Date: 20070222
  Transmission Date: 20080115
  Serious: No
  Sender: FDA-Public Use
  Company Number: US-BRISTOL-MYERS SQUIBB COMPANY-13690037

PATIENT
  Age: 68 Year
  Sex: Male

DRUGS (6)
  1. DEFINITY [Suspect]
  2. LISINOPRIL [Concomitant]
  3. DILTIAZEM HCL [Concomitant]
  4. TRICOR [Concomitant]
  5. NTP [Concomitant]
  6. LOVENOX [Concomitant]

REACTIONS (4)
  - BLOOD PRESSURE DECREASED [None]
  - CHEST PAIN [None]
  - NAUSEA [None]
  - NECK PAIN [None]
